FAERS Safety Report 5232120-6 (Version None)
Quarter: 2007Q1

REPORT INFORMATION
  Report Type: 
  Country: None (occurrence: None)
  Receive Date: 20061201
  Receipt Date: 20060828
  Transmission Date: 20070707
  Serious: No
  Sender: FDA-Public Use
  Company Number: US200608006830

PATIENT
  Sex: Female

DRUGS (3)
  1. CYMBALTA [Suspect]
     Indication: DEPRESSION
     Dosage: 60 MG
  2. SEROQUEL [Concomitant]
  3. TRAZODIL (TRAZODONE HYDROCHLORIDE) [Concomitant]

REACTIONS (1)
  - CATATONIA [None]
